FAERS Safety Report 18665420 (Version 1)
Quarter: 2020Q4

REPORT INFORMATION
  Report Type: Spontaneous
  Country: IT (occurrence: IT)
  Receive Date: 20201225
  Receipt Date: 20201225
  Transmission Date: 20210114
  Serious: Yes (Life-Threatening, Other)
  Sender: FDA-Public Use
  Company Number: IT-GLAXOSMITHKLINE-IT2020254554

PATIENT
  Age: 54 Year
  Sex: Female
  Weight: 64 kg

DRUGS (1)
  1. ATOVAQUONE. [Suspect]
     Active Substance: ATOVAQUONE
     Indication: PROPHYLAXIS
     Dosage: 10 ML, QD
     Route: 048
     Dates: start: 20201119, end: 20201128

REACTIONS (2)
  - Acute hepatic failure [Not Recovered/Not Resolved]
  - Medication error [Not Recovered/Not Resolved]

NARRATIVE: CASE EVENT DATE: 20201127
